FAERS Safety Report 9686656 (Version 1)
Quarter: 2013Q4

REPORT INFORMATION
  Report Type: Spontaneous
  Country: GR (occurrence: GR)
  Receive Date: 20131113
  Receipt Date: 20131113
  Transmission Date: 20140711
  Serious: Yes (Other)
  Sender: FDA-Public Use
  Company Number: GR-ROCHE-1301040

PATIENT
  Age: 37 Year
  Sex: Female

DRUGS (2)
  1. HERCEPTIN [Suspect]
     Indication: ADJUVANT THERAPY
     Route: 065
  2. THYROHORMONE [Concomitant]

REACTIONS (1)
  - Transaminases increased [Recovering/Resolving]
